FAERS Safety Report 9419303 (Version 1)
Quarter: 2013Q3

REPORT INFORMATION
  Report Type: Spontaneous
  Country: US (occurrence: US)
  Receive Date: 20130725
  Receipt Date: 20130725
  Transmission Date: 20140515
  Serious: Yes (Other)
  Sender: FDA-Public Use
  Company Number: US-GLAXOSMITHKLINE-A1005932A

PATIENT
  Sex: 0

DRUGS (2)
  1. LAMICTAL XR [Suspect]
     Indication: CONVULSION
     Route: 065
  2. UNSPECIFIED MEDICATIONS [Concomitant]

REACTIONS (2)
  - Convulsion [Unknown]
  - Drug ineffective [Unknown]
